FAERS Safety Report 9596164 (Version 2)
Quarter: 2013Q4

REPORT INFORMATION
  Report Type: Report from Study
  Country: US (occurrence: US)
  Receive Date: 20131004
  Receipt Date: 20131004
  Transmission Date: 20140711
  Serious: Yes (Hospitalization, Other)
  Sender: FDA-Public Use
  Company Number: US-BAYER-2013-108737

PATIENT
  Age: 66 Year
  Sex: Female

DRUGS (9)
  1. BETASERON [Suspect]
     Indication: MULTIPLE SCLEROSIS
     Dosage: 8 MIU, UNK
     Route: 058
     Dates: start: 20100102
  2. ENALAPRIL [ENALAPRIL] [Concomitant]
  3. BISOPROLOL [BISOPROLOL] [Concomitant]
  4. MODAFINIL [Concomitant]
  5. KLOR-CON [Concomitant]
  6. BUMETANIDE [Concomitant]
  7. GABAPENTIN [Concomitant]
  8. OMEGA 3 [FISH OIL] [Concomitant]
  9. CALCIUM +VIT D [Concomitant]

REACTIONS (5)
  - Cardiac failure congestive [Not Recovered/Not Resolved]
  - Proteinuria [Not Recovered/Not Resolved]
  - Syncope [Not Recovered/Not Resolved]
  - Depression [None]
  - Fatigue [None]
